FAERS Safety Report 9818102 (Version 1)
Quarter: 2013Q4

REPORT INFORMATION
  Report Type: Spontaneous
  Country: US (occurrence: None)
  Receive Date: 20131223
  Receipt Date: 20131223
  Transmission Date: 20140711
  Serious: Yes (Other)
  Sender: FDA-Public Use
  Company Number: 219925

PATIENT
  Sex: Female

DRUGS (2)
  1. PICATO [Suspect]
     Indication: ACTINIC KERATOSIS
     Dosage: (ONCE DAILY FRO 3 DOSES), TOPICAL
     Route: 061
     Dates: start: 20121027
  2. METHYLPHENIDATE (METHYLPHENIDATE) (20 MG) [Concomitant]

REACTIONS (6)
  - Application site pain [None]
  - Application site vesicles [None]
  - Application site discharge [None]
  - Application site erythema [None]
  - Application site scar [None]
  - Incorrect drug administration duration [None]
